FAERS Safety Report 6197297-7 (Version None)
Quarter: 2009Q2

REPORT INFORMATION
  Report Type: 
  Country: None (occurrence: None)
  Receive Date: 20090521
  Receipt Date: 20090513
  Transmission Date: 20091009
  Serious: Yes (Hospitalization)
  Sender: FDA-Public Use
  Company Number: IT-JNJFOC-20090404996

PATIENT
  Sex: Male

DRUGS (4)
  1. INVEGA [Suspect]
     Indication: SCHIZOPHRENIA
     Route: 048
  2. LARGACTIL [Concomitant]
     Indication: SCHIZOPHRENIA
  3. CARBOLITHIUM [Concomitant]
     Indication: MOOD ALTERED
  4. ENALAPRIL [Concomitant]
     Indication: ESSENTIAL HYPERTENSION
     Route: 048

REACTIONS (3)
  - ACUTE PRERENAL FAILURE [None]
  - CONFUSIONAL STATE [None]
  - HYPOTENSION [None]
